FAERS Safety Report 14506124 (Version 3)
Quarter: 2018Q2

REPORT INFORMATION
  Report Type: Spontaneous
  Country: US (occurrence: US)
  Receive Date: 20180208
  Receipt Date: 20180503
  Transmission Date: 20180711
  Serious: Yes (Hospitalization)
  Sender: FDA-Public Use
  Company Number: US-PFIZER INC-2018054420

PATIENT
  Sex: Female
  Weight: 73 kg

DRUGS (4)
  1. ALPRAZOLAM. [Concomitant]
     Active Substance: ALPRAZOLAM
     Indication: ANXIETY
     Dosage: 0.25 MG, 2X/DAY
  2. PRISTIQ EXTENDED-RELEASE [Suspect]
     Active Substance: DESVENLAFAXINE SUCCINATE
     Indication: DEPRESSION
     Dosage: 100 MG, 1X/DAY
     Route: 048
  3. ASTRAZOL [Concomitant]
     Indication: NEOPLASM MALIGNANT
     Dosage: 10 MG, 1X/DAY
     Route: 048
  4. ASTRAZOL [Concomitant]
     Dosage: 10 MG, 1X/DAY

REACTIONS (1)
  - Arthropathy [Recovered/Resolved]
